FAERS Safety Report 4332254-4 (Version None)
Quarter: 2004Q1

REPORT INFORMATION
  Report Type: 
  Country: None (occurrence: None)
  Receive Date: 20040331
  Receipt Date: 20040317
  Transmission Date: 20041129
  Serious: Yes (Hospitalization)
  Sender: FDA-Public Use
  Company Number: 2004204362FR

PATIENT
  Age: 73 Year
  Sex: Female

DRUGS (4)
  1. ALDACTONE [Suspect]
     Indication: ASCITES
     Dosage: 100 MG, DAILY, ORAL
     Route: 048
     Dates: end: 20040213
  2. LORAZEPAM [Concomitant]
  3. PARIET         (RABEPRAZOLE SODIUM) [Concomitant]
  4. KERLONE [Concomitant]

REACTIONS (10)
  - BRADYCARDIA [None]
  - FALL [None]
  - HYPERKALAEMIA [None]
  - HYPONATRAEMIA [None]
  - HYPOTENSION [None]
  - MALAISE [None]
  - MUSCULOSKELETAL STIFFNESS [None]
  - OEDEMA PERIPHERAL [None]
  - PERITONEAL DIALYSIS [None]
  - RHABDOMYOLYSIS [None]
